FAERS Safety Report 10618139 (Version 1)
Quarter: 2014Q4

REPORT INFORMATION
  Report Type: Spontaneous
  Country: GB (occurrence: GB)
  Receive Date: 20141202
  Receipt Date: 20141202
  Transmission Date: 20150529
  Serious: Yes (Hospitalization, Other)
  Sender: FDA-Public Use
  Company Number: GB-JNJFOC-20141118722

PATIENT
  Age: 24 Month
  Sex: Female

DRUGS (3)
  1. N ACETYLCYSTEINE [Suspect]
     Active Substance: ACETYLCYSTEINE
     Indication: TOXICITY TO VARIOUS AGENTS
     Route: 042
  2. PARACETAMOL [Suspect]
     Active Substance: ACETAMINOPHEN
     Route: 048
  3. PARACETAMOL [Suspect]
     Active Substance: ACETAMINOPHEN
     Indication: ACCIDENTAL EXPOSURE TO PRODUCT
     Route: 048

REACTIONS (12)
  - Blindness cortical [Not Recovered/Not Resolved]
  - Urticaria [Recovered/Resolved]
  - Dyspnoea [Recovered/Resolved]
  - Tachycardia [Recovered/Resolved]
  - Angioedema [Recovered/Resolved]
  - Accidental exposure to product by child [Unknown]
  - Respiratory tract infection viral [Unknown]
  - Encephalopathy [Unknown]
  - Partial seizures [Recovered/Resolved]
  - Hypotension [Recovered/Resolved]
  - Somnolence [Unknown]
  - Lethargy [Unknown]
